FAERS Safety Report 16094653 (Version 1)
Quarter: 2019Q1

REPORT INFORMATION
  Report Type: Spontaneous
  Country: US (occurrence: US)
  Receive Date: 20190217
  Receipt Date: 20190217
  Transmission Date: 20190418
  Serious: No
  Sender: FDA-Public Use
  Company Number: None

PATIENT
  Age: 44 Year
  Sex: Female

DRUGS (3)
  1. VITAMIN B12 [Concomitant]
     Active Substance: CYANOCOBALAMIN
  2. COSENTYX [Suspect]
     Active Substance: SECUKINUMAB
     Dosage: OTHER??19-FEB-2019
     Route: 058
  3. FOLIC [Concomitant]
     Active Substance: FOLIC ACID

REACTIONS (2)
  - Therapy cessation [None]
  - Pain [None]

NARRATIVE: CASE EVENT DATE: 20190117
